FAERS Safety Report 8539818-2 (Version None)
Quarter: 2012Q3

REPORT INFORMATION
  Report Type: 
  Country: None (occurrence: None)
  Receive Date: 20120726
  Receipt Date: 20120430
  Transmission Date: 20120928
  Serious: No
  Sender: FDA-Public Use
  Company Number: US-MYLANLABS-2012S1009013

PATIENT
  Age: 56 Year
  Sex: Male
  Weight: 74.39 kg

DRUGS (3)
  1. METFORMIN HYDROCHLORIDE [Concomitant]
     Indication: DIABETES MELLITUS
  2. TAMSULOSIN HCL [Suspect]
     Indication: PROSTATOMEGALY
     Route: 048
     Dates: start: 20100101
  3. GLYBURIDE [Concomitant]
     Indication: DIABETES MELLITUS

REACTIONS (2)
  - DYSURIA [None]
  - DRUG INEFFECTIVE [None]
